FAERS Safety Report 20775511 (Version 1)
Quarter: 2022Q2

REPORT INFORMATION
  Report Type: Spontaneous
  Country: US (occurrence: None)
  Receive Date: 20220502
  Receipt Date: 20220502
  Transmission Date: 20220721
  Serious: Yes (Hospitalization)
  Sender: FDA-Public Use
  Company Number: None

PATIENT
  Age: 58 Year
  Sex: Male
  Weight: 77.4 kg

DRUGS (1)
  1. EMEND [Suspect]
     Active Substance: APREPITANT
     Indication: Nausea
     Route: 042

REACTIONS (3)
  - Fall [None]
  - Agonal respiration [None]
  - Pulse absent [None]

NARRATIVE: CASE EVENT DATE: 20220412
